FAERS Safety Report 8448977-1 (Version None)
Quarter: 2012Q2

REPORT INFORMATION
  Report Type: 
  Country: None (occurrence: None)
  Receive Date: 20120619
  Receipt Date: 20120608
  Transmission Date: 20120825
  Serious: Yes (Congenital Anomaly, Other)
  Sender: FDA-Public Use
  Company Number: US-RB-040637-12

PATIENT
  Sex: Female
  Weight: 4 kg

DRUGS (5)
  1. CLONIDINE [Suspect]
     Indication: DRUG WITHDRAWAL SYNDROME
     Dosage: DOSING DETAILS UNKNOWN
     Route: 064
     Dates: start: 20110601, end: 20110901
  2. SUBUTEX TAB GENERIC [Suspect]
     Indication: DRUG DEPENDENCE
     Route: 064
     Dates: start: 20111201, end: 20120309
  3. SUBUTEX TAB GENERIC [Suspect]
     Route: 063
     Dates: start: 20120309, end: 20120316
  4. SUBOXONE [Suspect]
     Indication: DRUG DEPENDENCE
     Route: 064
     Dates: start: 20110901, end: 20111201
  5. HEROIN [Suspect]
     Indication: PRODUCT USED FOR UNKNOWN INDICATION
     Dosage: DOSING DETAILS UNKNOWN
     Route: 064
     Dates: start: 20110601, end: 20110901

REACTIONS (6)
  - CONVULSION NEONATAL [None]
  - GALACTOSAEMIA [None]
  - EXPOSURE DURING BREAST FEEDING [None]
  - VOMITING [None]
  - DIARRHOEA [None]
  - FOETAL EXPOSURE DURING PREGNANCY [None]
